FAERS Safety Report 6891358-2 (Version None)
Quarter: 2010Q3

REPORT INFORMATION
  Report Type: 
  Country: None (occurrence: None)
  Receive Date: 20100731
  Receipt Date: 20040423
  Transmission Date: 20110219
  Serious: No
  Sender: FDA-Public Use
  Company Number: US-PFIZER INC-2007060814

PATIENT
  Sex: Female

DRUGS (1)
  1. DEPO-MEDROL [Suspect]

REACTIONS (5)
  - ANXIETY [None]
  - DIARRHOEA [None]
  - DIZZINESS [None]
  - EXCORIATION [None]
  - FEELING ABNORMAL [None]
